FAERS Safety Report 5755978-0 (Version None)
Quarter: 2008Q2

REPORT INFORMATION
  Report Type: 
  Country: None (occurrence: None)
  Receive Date: 20080602
  Receipt Date: 20080501
  Transmission Date: 20081010
  Serious: No
  Sender: FDA-Public Use
  Company Number: US-BAYER-200714234BCC

PATIENT
  Age: 58 Year
  Sex: Female
  Weight: 52 kg

DRUGS (4)
  1. ALEVE [Suspect]
     Indication: NECK PAIN
     Route: 048
     Dates: start: 20071217
  2. TYLENOL [Concomitant]
  3. VITAMINS [Concomitant]
  4. SYNTHROID [Concomitant]

REACTIONS (1)
  - STOMACH DISCOMFORT [None]
